FAERS Safety Report 9379931 (Version 1)
Quarter: 2013Q3

REPORT INFORMATION
  Report Type: Spontaneous
  Country: US (occurrence: None)
  Receive Date: 20130701
  Receipt Date: 20130701
  Transmission Date: 20140515
  Serious: Yes (Hospitalization)
  Sender: FDA-Public Use
  Company Number: None

PATIENT
  Age: 43 Year
  Sex: Female

DRUGS (2)
  1. ENBREL 50 MG [Suspect]
     Indication: RHEUMATOID ARTHRITIS
     Dosage: 50 MG QWEEK SQ
     Dates: start: 20130503, end: 20130606
  2. ENBREL 50 MG [Suspect]
     Indication: INFLAMMATION
     Dosage: 50 MG QWEEK SQ
     Dates: start: 20130503, end: 20130606

REACTIONS (1)
  - Rhabdomyolysis [None]
